FAERS Safety Report 19165026 (Version 1)
Quarter: 2021Q2

REPORT INFORMATION
  Report Type: Spontaneous
  Country: US (occurrence: US)
  Receive Date: 20210421
  Receipt Date: 20210421
  Transmission Date: 20210717
  Serious: No
  Sender: FDA-Public Use
  Company Number: NVSC2021US090142

PATIENT
  Sex: Female

DRUGS (1)
  1. ZOFRAN [Suspect]
     Active Substance: ONDANSETRON HYDROCHLORIDE
     Indication: MORNING SICKNESS
     Dosage: 1 DF, PRN
     Route: 048

REACTIONS (5)
  - Normal newborn [Unknown]
  - Anxiety [Unknown]
  - Product use in unapproved indication [Unknown]
  - Delivery [Unknown]
  - Maternal exposure during pregnancy [Unknown]
